FAERS Safety Report 10629600 (Version 2)
Quarter: 2014Q4

REPORT INFORMATION
  Report Type: Report from Study
  Country: US (occurrence: US)
  Receive Date: 20141205
  Receipt Date: 20141212
  Transmission Date: 20150529
  Serious: Yes (Hospitalization, Other)
  Sender: FDA-Public Use
  Company Number: US-ROCHE-1500614

PATIENT
  Age: 46 Year
  Sex: Female
  Weight: 125.8 kg

DRUGS (8)
  1. PERTUZUMAB [Suspect]
     Active Substance: PERTUZUMAB
     Dosage: OVER 30 TO 60 MIN ON DAY 1, EVERY 3 WEEKS.?DATE OF LAST DOSE PRIOR TO SAE: 12/SEP/2014
     Route: 042
     Dates: start: 20140912
  2. PERTUZUMAB [Suspect]
     Active Substance: PERTUZUMAB
     Indication: BREAST CANCER
     Dosage: OVER 60 MIN ON DAY 1.?DATE OF LAST DOSE PRIOR TO SAE:01/AUG/2014
     Route: 042
     Dates: start: 20140801
  3. TRASTUZUMAB [Suspect]
     Active Substance: TRASTUZUMAB
     Dosage: OVER 30 TO 60 MIN ON DAY 1 EVERY 3 WEEKS?DATE OF LAST DOSE PRIOR TO SAE: 12/SEP/2014
     Route: 042
     Dates: start: 20140912
  4. DOCETAXEL. [Suspect]
     Active Substance: DOCETAXEL
     Dosage: OVER 60 MIN ON DAY 1 EVERY 3 WEEKS.?DATE OF LAST DOSE PRIOR TO SAE: 12/SEP/2014
     Route: 042
     Dates: start: 20140912
  5. DOCETAXEL. [Suspect]
     Active Substance: DOCETAXEL
     Indication: BREAST CANCER
     Dosage: OVER 60  MIN ON DAY 1.?DATE OF LAST DOSE PRIOR TO SAE: 01/AUG/2014
     Route: 042
     Dates: start: 20140801
  6. CARBOPLATIN. [Suspect]
     Active Substance: CARBOPLATIN
     Indication: BREAST CANCER
     Dosage: AUC:6 MG/ML/MIN OVER 30-60 MIN ON DAY 1 EVERY 3 ?DATE OF LAST DOSE PRIOR TO SAE: 01/AUG/2014
     Route: 042
     Dates: start: 20140801
  7. CARBOPLATIN. [Suspect]
     Active Substance: CARBOPLATIN
     Dosage: AUC:6 MG/ML/MIN OVER 30-60 MIN ON DAY 1 EVERY 3 WK?DATE OF LAST DOSE PRIOR TO SAE:12/SEP/2014
     Route: 042
     Dates: start: 20140912
  8. TRASTUZUMAB [Suspect]
     Active Substance: TRASTUZUMAB
     Indication: BREAST CANCER
     Dosage: OVER 60 MIN ON DAY 1.?DATE OF LAST DOSE PRIOR TO SAE: 01/AUG/2014
     Route: 042
     Dates: start: 20140801

REACTIONS (7)
  - Platelet count decreased [Unknown]
  - Nausea [Recovered/Resolved]
  - Hypokalaemia [Unknown]
  - Acute kidney injury [Unknown]
  - Hypophosphataemia [Not Recovered/Not Resolved]
  - Anaemia [Unknown]
  - Diarrhoea [Recovered/Resolved]

NARRATIVE: CASE EVENT DATE: 20140822
